FAERS Safety Report 14217060 (Version 2)
Quarter: 2017Q4

REPORT INFORMATION
  Report Type: Spontaneous
  Country: JP (occurrence: JP)
  Receive Date: 20171122
  Receipt Date: 20171212
  Transmission Date: 20180321
  Serious: Yes (Other)
  Sender: FDA-Public Use
  Company Number: JP-ROCHE-2028218

PATIENT
  Age: 65 Year
  Sex: Female

DRUGS (6)
  1. FLORINEF ACETATE [Suspect]
     Active Substance: FLUDROCORTISONE ACETATE
     Indication: PRODUCT USED FOR UNKNOWN INDICATION
     Dosage: ON 04/OCT/2017, MOST RECENT DOSE OF FLUDROCORTISONE ACETATE.
     Route: 048
     Dates: start: 201708
  2. TAKEPRON [Concomitant]
     Active Substance: LANSOPRAZOLE
     Dosage: DOSAGE IS UNCERTAIN.
     Route: 048
     Dates: start: 20150715
  3. BONVIVA [Suspect]
     Active Substance: IBANDRONATE SODIUM
     Indication: SYRINGOMYELIA
     Route: 042
     Dates: start: 20151113, end: 20171013
  4. PURSENNID [Concomitant]
     Active Substance: SENNOSIDES A AND B
     Dosage: DOSAGE IS UNCERTAIN.
     Route: 048
  5. LYRICA [Concomitant]
     Active Substance: PREGABALIN
     Dosage: DOSAGE IS UNCERTAIN.
     Route: 048
  6. EDIROL [Concomitant]
     Active Substance: ELDECALCITOL
     Dosage: DOSAGE IS UNCERTAIN.
     Route: 048

REACTIONS (4)
  - Tetany [Not Recovered/Not Resolved]
  - Hypokalaemia [Unknown]
  - Hypocalcaemia [Recovered/Resolved]
  - Oedema [Unknown]

NARRATIVE: CASE EVENT DATE: 2017
